FAERS Safety Report 6397491-6 (Version None)
Quarter: 2009Q4

REPORT INFORMATION
  Report Type: 
  Country: None (occurrence: None)
  Receive Date: 20091012
  Receipt Date: 20090930
  Transmission Date: 20100525
  Serious: Yes (Death)
  Sender: FDA-Public Use
  Company Number: US-PFIZER INC-2009267181

PATIENT
  Sex: Male
  Weight: 54.2 kg

DRUGS (10)
  1. SUNITINIB MALATE [Suspect]
     Indication: RENAL CELL CARCINOMA
     Dosage: 50 MG, 1X/DAY
     Route: 048
     Dates: start: 20090714, end: 20090903
  2. ERLOTINIB [Suspect]
     Indication: RENAL CELL CARCINOMA
     Dosage: 150 MG, 1X/DAY
     Route: 048
     Dates: start: 20090714, end: 20090903
  3. ACETAMINOPHEN [Concomitant]
     Dosage: 500 MG, 2X/DAY
     Route: 048
  4. ACETYLSALICYLIC ACID [Concomitant]
     Dosage: 81 MG, 1X/DAY
     Route: 048
  5. ATENOLOL AND CHLORTHALIDONE [Concomitant]
     Indication: HYPERTENSION
     Dosage: 50-25 MG, 1X/DAY
     Route: 048
  6. LIPITOR [Concomitant]
     Dosage: 20 MG, 1X/DAY
     Route: 048
  7. MINOCYCLINE HYDROCHLORIDE [Concomitant]
     Dosage: 100 MG, 1X/DAY
     Route: 048
  8. OXYCONTIN [Concomitant]
     Dosage: 10 MG, EVERY 12 HOURS
     Route: 048
  9. OXYCODONE [Concomitant]
     Dosage: 5 MG, EVERY 6 HOURS, AS NEEDED
     Route: 048
  10. POTASSIUM CHLORIDE [Concomitant]
     Dosage: 1 DAILY
     Route: 048

REACTIONS (1)
  - AORTIC ANEURYSM RUPTURE [None]
